FAERS Safety Report 17951936 (Version 2)
Quarter: 2020Q3

REPORT INFORMATION
  Report Type: Spontaneous
  Country: US (occurrence: US)
  Receive Date: 20200626
  Receipt Date: 20200901
  Transmission Date: 20201103
  Serious: No
  Sender: FDA-Public Use
  Company Number: US-PFIZER INC-2020246218

PATIENT
  Age: 64 Year
  Sex: Female
  Weight: 47 kg

DRUGS (3)
  1. IBRANCE [Suspect]
     Active Substance: PALBOCICLIB
     Dosage: UNK
     Route: 048
  2. CALCIUM [Concomitant]
     Active Substance: CALCIUM
     Dosage: UNK
  3. IBRANCE [Suspect]
     Active Substance: PALBOCICLIB
     Indication: BREAST CANCER FEMALE
     Dosage: 100 MG, CYCLIC (1 DAILY FOR 21DAYS ON, 7 DAYS OFF)
     Route: 048

REACTIONS (4)
  - Blood count abnormal [Unknown]
  - Pyrexia [Unknown]
  - Lethargy [Unknown]
  - Fatigue [Unknown]
